FAERS Safety Report 9351915 (Version 1)
Quarter: 2013Q2

REPORT INFORMATION
  Report Type: Report from Study
  Country: GB (occurrence: GB)
  Receive Date: 20130617
  Receipt Date: 20130617
  Transmission Date: 20140414
  Serious: Yes (Other)
  Sender: FDA-Public Use
  Company Number: GB-GLAXOSMITHKLINE-B0897871A

PATIENT
  Age: 56 Year
  Sex: Male

DRUGS (2)
  1. SERETIDE [Suspect]
     Indication: CHRONIC OBSTRUCTIVE PULMONARY DISEASE
     Dosage: 2PUFF TWICE PER DAY
     Route: 065
  2. TIOTROPIUM [Concomitant]

REACTIONS (1)
  - Infective exacerbation of chronic obstructive airways disease [Unknown]
